FAERS Safety Report 11158158 (Version 2)
Quarter: 2015Q3

REPORT INFORMATION
  Report Type: Spontaneous
  Country: JP (occurrence: JP)
  Receive Date: 20150603
  Receipt Date: 20150803
  Transmission Date: 20151125
  Serious: Yes (Other)
  Sender: FDA-Public Use
  Company Number: JP-MYLANLABS-2015M1017108

PATIENT

DRUGS (4)
  1. RINDERON                           /00008501/ [Suspect]
     Active Substance: BETAMETHASONE
     Dosage: 4 MG, QD
     Route: 065
  2. RINDERON                           /00008501/ [Suspect]
     Active Substance: BETAMETHASONE
     Indication: LUNG ADENOCARCINOMA STAGE IV
     Dosage: 8 MG, QD
     Route: 065
  3. CARBOPLATIN INJECTION 50 MG ^NK^ [Suspect]
     Active Substance: CARBOPLATIN
     Indication: LUNG ADENOCARCINOMA STAGE IV
     Route: 041
  4. ALIMTA [Suspect]
     Active Substance: PEMETREXED DISODIUM
     Indication: LUNG ADENOCARCINOMA STAGE IV
     Route: 041

REACTIONS (5)
  - Cytomegalovirus infection [Recovered/Resolved]
  - Herpes virus infection [Recovered/Resolved]
  - Oesophageal candidiasis [Recovered/Resolved]
  - Penile ulceration [Recovered/Resolved]
  - Oral candidiasis [Recovered/Resolved]
